FAERS Safety Report 10365325 (Version 1)
Quarter: 2014Q3

REPORT INFORMATION
  Report Type: Spontaneous
  Country: US (occurrence: US)
  Receive Date: 20140806
  Receipt Date: 20140806
  Transmission Date: 20150326
  Serious: No
  Sender: FDA-Public Use
  Company Number: US-PFIZER INC-2014216407

PATIENT
  Age: 47 Year
  Sex: Male
  Weight: 81.63 kg

DRUGS (2)
  1. GABAPENTIN. [Suspect]
     Active Substance: GABAPENTIN
     Indication: NEUROPATHY PERIPHERAL
     Dosage: 100 MG, 1X/DAY
     Route: 048
     Dates: start: 2011, end: 20140727
  2. TOPROL XL [Concomitant]
     Active Substance: METOPROLOL SUCCINATE
     Indication: HYPERTENSION
     Dosage: 100 MG, UNK

REACTIONS (9)
  - Cough [Unknown]
  - Larynx irritation [Not Recovered/Not Resolved]
  - Oropharyngeal pain [Unknown]
  - Laryngeal discomfort [Unknown]
  - Aphonia [Recovered/Resolved]
  - Diarrhoea [Recovered/Resolved]
  - Dysphonia [Unknown]
  - Cold sweat [Recovered/Resolved]
  - Pharyngeal disorder [Not Recovered/Not Resolved]

NARRATIVE: CASE EVENT DATE: 201312
